FAERS Safety Report 12153113 (Version 1)
Quarter: 2016Q1

REPORT INFORMATION
  Report Type: Spontaneous
  Country: US (occurrence: US)
  Receive Date: 20160305
  Receipt Date: 20160305
  Transmission Date: 20160526
  Serious: No
  Sender: FDA-Public Use
  Company Number: US-JNJFOC-20160206788

PATIENT
  Sex: Male

DRUGS (2)
  1. SUDAFED 24 HOUR [Suspect]
     Active Substance: PSEUDOEPHEDRINE HYDROCHLORIDE
     Route: 065
  2. SUDAFED 24 HOUR [Suspect]
     Active Substance: PSEUDOEPHEDRINE HYDROCHLORIDE
     Indication: NASOPHARYNGITIS
     Dosage: TOOK 1 TAB; ALMOST EXACTLY 12 HOURS HIS COLD SYMPTOMS??RETURNED,HE TOOK ANOTHER 1 COUPLE HOURS LATER
     Route: 065

REACTIONS (3)
  - Extra dose administered [Unknown]
  - Drug effect incomplete [Unknown]
  - Insomnia [Unknown]
